FAERS Safety Report 13612921 (Version 1)
Quarter: 2017Q2

REPORT INFORMATION
  Report Type: Spontaneous
  Country: RU (occurrence: RU)
  Receive Date: 20170605
  Receipt Date: 20170605
  Transmission Date: 20170830
  Serious: Yes (Other)
  Sender: FDA-Public Use
  Company Number: RU-JNJFOC-20170521895

PATIENT
  Sex: Female

DRUGS (8)
  1. CAELYX [Suspect]
     Active Substance: DOXORUBICIN HYDROCHLORIDE
     Indication: OVARIAN CANCER RECURRENT
     Route: 065
  2. TRABECTEDIN [Suspect]
     Active Substance: TRABECTEDIN
     Indication: OVARIAN CANCER RECURRENT
     Route: 065
     Dates: start: 20130731, end: 20140702
  3. GEMCITABINE [Suspect]
     Active Substance: GEMCITABINE\GEMCITABINE HYDROCHLORIDE
     Indication: OVARIAN CANCER RECURRENT
     Dosage: ON DAY1 AND DAY 8
     Route: 065
     Dates: start: 20120525, end: 20121017
  4. CARBOPLATIN. [Suspect]
     Active Substance: CARBOPLATIN
     Indication: OVARIAN CANCER RECURRENT
     Route: 065
  5. CAELYX [Suspect]
     Active Substance: DOXORUBICIN HYDROCHLORIDE
     Indication: OVARIAN CANCER RECURRENT
     Route: 065
     Dates: start: 20130731, end: 20140702
  6. TRABECTEDIN [Suspect]
     Active Substance: TRABECTEDIN
     Indication: OVARIAN CANCER RECURRENT
     Route: 065
  7. PACLITAXEL. [Suspect]
     Active Substance: PACLITAXEL
     Indication: OVARIAN CANCER RECURRENT
     Route: 065
  8. CARBOPLATIN. [Suspect]
     Active Substance: CARBOPLATIN
     Indication: OVARIAN CANCER RECURRENT
     Route: 065
     Dates: start: 20120525, end: 20121017

REACTIONS (9)
  - Alanine aminotransferase increased [Unknown]
  - Respiratory tract infection viral [Not Recovered/Not Resolved]
  - Aspartate aminotransferase increased [Unknown]
  - Neutropenia [Not Recovered/Not Resolved]
  - Polyneuropathy [Unknown]
  - Alopecia [Unknown]
  - Palmar-plantar erythrodysaesthesia syndrome [Unknown]
  - Thrombocytopenia [Not Recovered/Not Resolved]
  - Anaemia [Not Recovered/Not Resolved]

NARRATIVE: CASE EVENT DATE: 201307
